FAERS Safety Report 9589505 (Version 1)
Quarter: 2013Q4

REPORT INFORMATION
  Report Type: Spontaneous
  Country: US (occurrence: US)
  Receive Date: 20131003
  Receipt Date: 20131003
  Transmission Date: 20140711
  Serious: No
  Sender: FDA-Public Use
  Company Number: US-AMGEN-USASP2012070427

PATIENT
  Sex: Female
  Weight: 69.84 kg

DRUGS (11)
  1. ENBREL [Suspect]
     Indication: RHEUMATOID ARTHRITIS
     Dosage: 50 MG, QWK
     Route: 058
  2. FOLIC ACID [Concomitant]
     Dosage: 1 MG, UNK
  3. ADVAIR [Concomitant]
     Dosage: ADVAIR DISKU AER 100/50
  4. SPIRIVA HANDIHALER [Concomitant]
     Dosage: UNK
  5. PLAQUENIL                          /00072602/ [Concomitant]
     Dosage: 200 MG, UNK
  6. OCUVITE                            /01053801/ [Concomitant]
     Dosage: UNK
  7. CALCIUM +D                         /00944201/ [Concomitant]
     Dosage: UNK
  8. SYNTHROID [Concomitant]
     Dosage: 100 MUG, UNK
  9. PROAIR HFA [Concomitant]
     Dosage: UNK
  10. FISH OIL [Concomitant]
     Dosage: UNK
  11. CARVEDILOL [Concomitant]
     Dosage: 12.5 MG, UNK

REACTIONS (1)
  - Cough [Unknown]
